FAERS Safety Report 14430835 (Version 1)
Quarter: 2018Q1

REPORT INFORMATION
  Report Type: Spontaneous
  Country: US (occurrence: US)
  Receive Date: 20180124
  Receipt Date: 20180124
  Transmission Date: 20180509
  Serious: Yes (Death, Life-Threatening, Hospitalization, Disabling)
  Sender: FDA-Public Use
  Company Number: None

PATIENT
  Age: 23 Year
  Sex: Female
  Weight: 83.91 kg

DRUGS (1)
  1. LEVAQUIN [Suspect]
     Active Substance: LEVOFLOXACIN
     Indication: LEUKAEMIA
     Dates: start: 2010, end: 2010

REACTIONS (4)
  - General physical health deterioration [None]
  - Malaise [None]
  - Bowel movement irregularity [None]
  - Poor quality drug administered [None]
